FAERS Safety Report 13431130 (Version 2)
Quarter: 2017Q3

REPORT INFORMATION
  Report Type: Report from Study
  Country: US (occurrence: US)
  Receive Date: 20170412
  Receipt Date: 20170705
  Transmission Date: 20171127
  Serious: Yes (Hospitalization, Disabling, Other)
  Sender: FDA-Public Use
  Company Number: PHEH2017US010260

PATIENT
  Sex: Female

DRUGS (1)
  1. MEKINIST [Suspect]
     Active Substance: TRAMETINIB DIMETHYL SULFOXIDE
     Indication: LUNG NEOPLASM
     Dosage: UNK
     Route: 065
     Dates: start: 20170421

REACTIONS (9)
  - Rash generalised [Not Recovered/Not Resolved]
  - Lymphoedema [Recovering/Resolving]
  - Dyspnoea [Unknown]
  - Pain [Recovering/Resolving]
  - Rash [Not Recovered/Not Resolved]
  - Adverse reaction [Recovering/Resolving]
  - Blood pressure increased [Recovering/Resolving]
  - Lung neoplasm malignant [Unknown]
  - Blister [Not Recovered/Not Resolved]
